FAERS Safety Report 9688806 (Version 1)
Quarter: 2013Q4

REPORT INFORMATION
  Report Type: Spontaneous
  Country: US (occurrence: US)
  Receive Date: 20131114
  Receipt Date: 20131114
  Transmission Date: 20140711
  Serious: Yes (Hospitalization)
  Sender: FDA-Public Use
  Company Number: US-BAYER-2013-137731

PATIENT
  Age: 33 Year
  Sex: Female

DRUGS (5)
  1. YASMIN [Suspect]
     Route: 048
  2. ALEVE [Concomitant]
     Dosage: UNK UNK, PRN
  3. SYNTHROID [Concomitant]
     Dosage: 0.137 MG, QD
     Dates: start: 20040626, end: 20040728
  4. SYNTHROID [Concomitant]
     Dosage: 0.15 MG, QD
     Dates: start: 20040602
  5. VICODIN [Concomitant]

REACTIONS (1)
  - Deep vein thrombosis [None]
